FAERS Safety Report 5506802-2 (Version None)
Quarter: 2007Q4

REPORT INFORMATION
  Report Type: 
  Country: None (occurrence: None)
  Receive Date: 20071105
  Receipt Date: 20071025
  Transmission Date: 20080405
  Serious: Yes (Other)
  Sender: FDA-Public Use
  Company Number: US-PFIZER INC-2007090458

PATIENT
  Sex: Male
  Weight: 165 kg

DRUGS (15)
  1. LIPITOR [Suspect]
     Indication: BLOOD CHOLESTEROL INCREASED
  2. POTASSIUM CHLORIDE [Concomitant]
  3. ECOTRIN [Concomitant]
  4. ACETYLSALICYLIC ACID SRT [Concomitant]
  5. PLAVIX [Concomitant]
  6. GLYBURIDE [Concomitant]
  7. METFORMIN [Concomitant]
  8. HYTRIN [Concomitant]
  9. AMIODARONE HCL [Concomitant]
  10. PRILOSEC [Concomitant]
     Dosage: DAILY DOSE:20MG-FREQ:DAILY
  11. OMEPRAZOLE [Concomitant]
     Dosage: DAILY DOSE:20MG-FREQ:DAILY
  12. COREG [Concomitant]
     Dosage: DAILY DOSE:80MG-FREQ:DAILY
  13. FUROSEMIDE [Concomitant]
  14. QUINAPRIL HCL [Concomitant]
  15. XANAX [Concomitant]

REACTIONS (9)
  - BLOOD GLUCOSE INCREASED [None]
  - CARDIAC ARREST [None]
  - HYPOAESTHESIA [None]
  - IMPAIRED DRIVING ABILITY [None]
  - MEMORY IMPAIRMENT [None]
  - MUSCULOSKELETAL STIFFNESS [None]
  - PAIN IN EXTREMITY [None]
  - POLYPECTOMY [None]
  - WEIGHT DECREASED [None]
